FAERS Safety Report 18647509 (Version 3)
Quarter: 2021Q1

REPORT INFORMATION
  Report Type: Spontaneous
  Country: US (occurrence: US)
  Receive Date: 20201222
  Receipt Date: 20210128
  Transmission Date: 20210419
  Serious: Yes (Hospitalization)
  Sender: FDA-Public Use
  Company Number: US-BLUEPRINT MEDICINES CORPORATION-SP-US-2020-001315

PATIENT
  Age: 66 Year
  Sex: Male

DRUGS (2)
  1. AYVAKIT [Suspect]
     Active Substance: AVAPRITINIB
     Indication: GASTROINTESTINAL STROMAL TUMOUR
     Route: 048
     Dates: start: 20201118
  2. AYVAKIT [Suspect]
     Active Substance: AVAPRITINIB
     Route: 048
     Dates: start: 20201118

REACTIONS (20)
  - Decreased appetite [Recovered/Resolved]
  - Platelet count decreased [Unknown]
  - COVID-19 [Unknown]
  - Diarrhoea [Recovered/Resolved]
  - Nausea [Unknown]
  - Oropharyngeal pain [Recovered/Resolved]
  - Tremor [Unknown]
  - Haemoglobin decreased [Unknown]
  - Dysphonia [Recovered/Resolved]
  - Dizziness [Recovered/Resolved]
  - Asthenia [Recovering/Resolving]
  - White blood cell count decreased [Unknown]
  - Parosmia [Unknown]
  - Blood pressure increased [Recovered/Resolved]
  - Ageusia [Unknown]
  - Feeding disorder [Unknown]
  - Red blood cell count decreased [Unknown]
  - Gastrointestinal ulcer [Unknown]
  - Haematochezia [Recovered/Resolved]
  - Taste disorder [Unknown]

NARRATIVE: CASE EVENT DATE: 202101
